FAERS Safety Report 5339078-X (Version None)
Quarter: 2007Q2

REPORT INFORMATION
  Report Type: 
  Country: None (occurrence: None)
  Receive Date: 20070530
  Receipt Date: 20070518
  Transmission Date: 20071010
  Serious: Yes (Other)
  Sender: FDA-Public Use
  Company Number: US-PFIZER INC-2007040795

PATIENT
  Age: 67 Year
  Sex: Male
  Weight: 68.181 kg

DRUGS (1)
  1. VIAGRA [Suspect]
     Indication: ILL-DEFINED DISORDER
     Dosage: TEXT:50MG

REACTIONS (3)
  - BLINDNESS TRANSIENT [None]
  - GLARE [None]
  - VISION BLURRED [None]
